FAERS Safety Report 23084225 (Version 1)
Quarter: 2023Q4

REPORT INFORMATION
  Report Type: Report from Study
  Country: NL (occurrence: NL)
  Receive Date: 20231019
  Receipt Date: 20231019
  Transmission Date: 20240110
  Serious: Yes (Hospitalization)
  Sender: FDA-Public Use
  Company Number: NL-ABBVIE-5456428

PATIENT
  Age: 82 Year
  Sex: Female

DRUGS (6)
  1. CARBIDOPA\LEVODOPA [Suspect]
     Active Substance: CARBIDOPA\LEVODOPA
     Indication: Parkinson^s disease
     Dosage: MD:5.8ML; CD:1.8ML/H; ED:1.0ML;?DURATION TEXT: REMAINS AT 16 HOURS
     Route: 050
     Dates: start: 20230308
  2. CARBIDOPA\LEVODOPA [Suspect]
     Active Substance: CARBIDOPA\LEVODOPA
  3. BENSERAZIDE HYDROCHLORIDE\LEVODOPA [Concomitant]
     Active Substance: BENSERAZIDE HYDROCHLORIDE\LEVODOPA
     Indication: On and off phenomenon
     Dosage: TIME INTERVAL: 0.14285714 DAYS
     Route: 048
  4. BENSERAZIDE HYDROCHLORIDE\LEVODOPA [Concomitant]
     Active Substance: BENSERAZIDE HYDROCHLORIDE\LEVODOPA
     Indication: On and off phenomenon
     Dosage: DOSE-62.5 MG
     Route: 048
  5. BENSERAZIDE HYDROCHLORIDE\LEVODOPA [Concomitant]
     Active Substance: BENSERAZIDE HYDROCHLORIDE\LEVODOPA
     Indication: On and off phenomenon
     Dosage: TIME INTERVAL: 0.33333333 DAYS: DOSE -31.25 MG
     Route: 048
  6. LEVODOPA/CARBIDOPA PCH RETARD [Concomitant]
     Indication: Product used for unknown indication
     Dosage: 100/25MG?FORM STRENGTH: 125 MILLIGRAM?FREQUENCY TEXT: ONE FOR THE NIGHT
     Route: 048

REACTIONS (1)
  - Open globe injury [Recovering/Resolving]

NARRATIVE: CASE EVENT DATE: 20230101
